FAERS Safety Report 25538198 (Version 1)
Quarter: 2025Q3

REPORT INFORMATION
  Report Type: Spontaneous
  Country: AU (occurrence: AU)
  Receive Date: 20250710
  Receipt Date: 20250710
  Transmission Date: 20251021
  Serious: Yes (Other)
  Sender: RANBAXY
  Company Number: AU-SUN PHARMACEUTICAL INDUSTRIES LTD-2025RR-515980

PATIENT
  Age: 74 Year
  Sex: Male

DRUGS (4)
  1. ENZALUTAMIDE [Suspect]
     Active Substance: ENZALUTAMIDE
     Indication: Metastasis
     Route: 065
  2. ABIRATERONE [Suspect]
     Active Substance: ABIRATERONE
     Indication: Metastasis
     Route: 065
  3. DOCETAXEL [Suspect]
     Active Substance: DOCETAXEL
     Indication: Metastasis
     Route: 065
  4. CABAZITAXEL [Suspect]
     Active Substance: CABAZITAXEL
     Indication: Metastasis
     Route: 065

REACTIONS (1)
  - Disease progression [Unknown]
